FAERS Safety Report 15808559 (Version 1)
Quarter: 2019Q1

REPORT INFORMATION
  Report Type: Spontaneous
  Country: GB (occurrence: GB)
  Receive Date: 20190110
  Receipt Date: 20190110
  Transmission Date: 20190417
  Serious: Yes (Other)
  Sender: FDA-Public Use
  Company Number: GB-PFIZER INC-HQWYE190714MAY03

PATIENT
  Age: 44 Year
  Sex: Male

DRUGS (4)
  1. CYCLOSPORINE. [Interacting]
     Active Substance: CYCLOSPORINE
     Indication: PROPHYLAXIS AGAINST TRANSPLANT REJECTION
     Dosage: 8.0 MG/KG, 1X/DAY
     Route: 065
  2. SIROLIMUS. [Suspect]
     Active Substance: SIROLIMUS
     Indication: PROPHYLAXIS AGAINST TRANSPLANT REJECTION
     Dosage: 6 MG, (LOADING DOSE)
     Route: 065
  3. SIROLIMUS. [Interacting]
     Active Substance: SIROLIMUS
     Dosage: 2 MG, DAILY (DAILY DOSE)
     Route: 065
  4. PREDNISOLONE. [Concomitant]
     Active Substance: PREDNISOLONE
     Indication: IMMUNOSUPPRESSION
     Dosage: UNK
     Route: 065

REACTIONS (5)
  - Thrombotic microangiopathy [Recovering/Resolving]
  - Drug interaction [Recovering/Resolving]
  - Kidney transplant rejection [Recovering/Resolving]
  - Nephropathy [Recovering/Resolving]
  - Renal tubular necrosis [Recovering/Resolving]
